FAERS Safety Report 17730458 (Version 1)
Quarter: 2020Q2

REPORT INFORMATION
  Report Type: Report from Study
  Country: CN (occurrence: CN)
  Receive Date: 20200430
  Receipt Date: 20200430
  Transmission Date: 20200714
  Serious: Yes (Other)
  Sender: FDA-Public Use
  Company Number: CN-ASTRAZENECA-2020SE56457

PATIENT
  Age: 39 Year
  Sex: Male

DRUGS (3)
  1. ASPIRIN. [Concomitant]
     Active Substance: ASPIRIN
     Route: 065
  2. TICAGRELOR. [Suspect]
     Active Substance: TICAGRELOR
     Indication: ACUTE CORONARY SYNDROME
     Dosage: 180.0MG UNKNOWN
     Route: 048
  3. ATENOLOL. [Concomitant]
     Active Substance: ATENOLOL
     Route: 065

REACTIONS (2)
  - Sinus node dysfunction [Recovered/Resolved]
  - Ventricular asystole [Unknown]
